FAERS Safety Report 9518063 (Version 1)
Quarter: 2013Q3

REPORT INFORMATION
  Report Type: Spontaneous
  Country: US (occurrence: US)
  Receive Date: 20130912
  Receipt Date: 20130912
  Transmission Date: 20140515
  Serious: No
  Sender: FDA-Public Use
  Company Number: US-PFIZER INC-2013260847

PATIENT
  Age: 60 Year
  Sex: Female

DRUGS (7)
  1. XELJANZ [Suspect]
     Indication: RHEUMATOID ARTHRITIS
     Dosage: 5MG, 2X/DAY (1 TABLET TWICE A DAY)
     Route: 048
     Dates: end: 20130909
  2. BUMEX [Concomitant]
     Dosage: 0.5 MG, UNK
  3. EFEXOR XR [Concomitant]
     Dosage: 37.5 MG, UNK
  4. PREMARIN [Concomitant]
     Dosage: 0.625 MG, UNK
  5. OMEPRAZOLE [Concomitant]
     Dosage: 10 MG, UNK
  6. ZINC 15 [Concomitant]
     Dosage: 66 MG, UNK
  7. LORTAB 5 [Concomitant]
     Dosage: UNK

REACTIONS (3)
  - Rash papular [Unknown]
  - Rash pruritic [Unknown]
  - Blister [Unknown]
